FAERS Safety Report 17628551 (Version 4)
Quarter: 2020Q3

REPORT INFORMATION
  Report Type: Report from Study
  Country: None (occurrence: US)
  Receive Date: 20200406
  Receipt Date: 20200930
  Transmission Date: 20201102
  Serious: Yes (Other)
  Sender: FDA-Public Use
  Company Number: US-ABBVIE-20K-163-3351245-00

PATIENT
  Sex: Female
  Weight: 69.01 kg

DRUGS (8)
  1. HUMIRA [Suspect]
     Active Substance: ADALIMUMAB
     Indication: COLITIS ULCERATIVE
  2. HUMIRA [Suspect]
     Active Substance: ADALIMUMAB
     Indication: COLITIS ULCERATIVE
     Route: 058
  3. IMURAN [Suspect]
     Active Substance: AZATHIOPRINE
     Dosage: INCREASED DOSE
     Route: 065
     Dates: start: 2020
  4. HUMIRA [Suspect]
     Active Substance: ADALIMUMAB
     Route: 058
  5. IMURAN [Suspect]
     Active Substance: AZATHIOPRINE
     Indication: COLITIS ULCERATIVE
     Route: 065
     Dates: start: 202002, end: 2020
  6. HUMIRA [Suspect]
     Active Substance: ADALIMUMAB
     Indication: JUVENILE IDIOPATHIC ARTHRITIS
     Route: 058
     Dates: start: 20200715
  7. HUMIRA [Suspect]
     Active Substance: ADALIMUMAB
     Route: 058
  8. HUMIRA [Suspect]
     Active Substance: ADALIMUMAB
     Indication: JUVENILE IDIOPATHIC ARTHRITIS
     Route: 058

REACTIONS (6)
  - Gastrointestinal disorder [Recovering/Resolving]
  - Rectal haemorrhage [Not Recovered/Not Resolved]
  - Drug ineffective [Unknown]
  - Colitis ulcerative [Recovering/Resolving]
  - Visual impairment [Unknown]
  - Diarrhoea [Unknown]

NARRATIVE: CASE EVENT DATE: 2016
